FAERS Safety Report 10759412 (Version 1)
Quarter: 2015Q1

REPORT INFORMATION
  Report Type: Report from Study
  Country: CA (occurrence: CA)
  Receive Date: 20150203
  Receipt Date: 20150203
  Transmission Date: 20150721
  Serious: Yes (Hospitalization)
  Sender: FDA-Public Use
  Company Number: PHHY2014CA031698

PATIENT
  Sex: Female

DRUGS (5)
  1. COVERSYL//PERINDOPRIL ARGININE [Concomitant]
     Indication: BLOOD PRESSURE
     Route: 065
     Dates: start: 20141231
  2. CELEBREX [Concomitant]
     Active Substance: CELECOXIB
     Indication: PRODUCT USED FOR UNKNOWN INDICATION
     Route: 065
  3. OLMETEC [Concomitant]
     Active Substance: OLMESARTAN MEDOXOMIL
     Indication: PRODUCT USED FOR UNKNOWN INDICATION
     Dosage: 20 MG, UNK
     Route: 065
  4. TASIGNA [Suspect]
     Active Substance: NILOTINIB
     Indication: CHRONIC MYELOID LEUKAEMIA
     Dosage: 300 MG, BID
     Route: 048
     Dates: start: 20131122
  5. EPIPEN [Concomitant]
     Active Substance: EPINEPHRINE
     Indication: HYPERSENSITIVITY
     Route: 065

REACTIONS (6)
  - Dry skin [Unknown]
  - Pruritus [Unknown]
  - Hypersensitivity [Unknown]
  - Joint swelling [Unknown]
  - Swollen tongue [Unknown]
  - Peripheral swelling [Not Recovered/Not Resolved]
